FAERS Safety Report 17959461 (Version 3)
Quarter: 2020Q3

REPORT INFORMATION
  Report Type: Spontaneous
  Country: NZ (occurrence: NZ)
  Receive Date: 20200630
  Receipt Date: 20200804
  Transmission Date: 20201103
  Serious: Yes (Death, Life-Threatening, Disabling)
  Sender: FDA-Public Use
  Company Number: NZ-BEH-2020119300

PATIENT
  Age: 58 Year
  Sex: Female
  Weight: 55 kg

DRUGS (20)
  1. PARACETAMOL [Concomitant]
     Active Substance: ACETAMINOPHEN
     Indication: ANALGESIC THERAPY
  2. CYCLIZINE [Concomitant]
     Active Substance: CYCLIZINE
     Indication: NAUSEA
     Dosage: 25 MILLIGRAM
     Route: 042
     Dates: start: 20200622
  3. ONDANSETRON [Concomitant]
     Active Substance: ONDANSETRON
     Indication: NAUSEA
     Dosage: 4 MILLIGRAM
     Route: 042
     Dates: start: 20200622
  4. PLATELETS [Concomitant]
     Active Substance: HUMAN PLATELET, ALLOGENIC
     Dosage: UNK, PRN
     Dates: start: 20200602
  5. DOMPERIDONE [Concomitant]
     Active Substance: DOMPERIDONE
     Indication: NAUSEA
     Dosage: 10 MILLIGRAM, QID
     Route: 048
     Dates: start: 20200603
  6. MONTELUKAST [Concomitant]
     Active Substance: MONTELUKAST SODIUM
     Indication: PREMEDICATION
     Dosage: 10 MILLIGRAM
     Route: 048
     Dates: start: 20200617
  7. PRIVIGEN [Suspect]
     Active Substance: HUMAN IMMUNOGLOBULIN G
     Indication: THROMBOCYTOPENIA
  8. LAXOL [DOCUSATE SODIUM] [Concomitant]
     Active Substance: DOCUSATE SODIUM
     Indication: CONSTIPATION
     Dosage: 1?2 TABS, BID
     Route: 048
     Dates: start: 20200604
  9. PRIVIGEN [Suspect]
     Active Substance: HUMAN IMMUNOGLOBULIN G
     Indication: REFRACTORINESS TO PLATELET TRANSFUSION
     Dosage: 20 GRAM, TOT
     Route: 042
     Dates: start: 20200622, end: 20200622
  10. HYDROCORTISONE. [Concomitant]
     Active Substance: HYDROCORTISONE
     Indication: PREMEDICATION
     Dosage: 100 MILLIGRAM
     Route: 042
     Dates: start: 20200604
  11. PROMETHAZINE [Concomitant]
     Active Substance: PROMETHAZINE HYDROCHLORIDE
     Indication: PREMEDICATION
     Dosage: 12.5 MILLIGRAM
     Route: 042
     Dates: start: 20200609
  12. LOPERAMIDE [Concomitant]
     Active Substance: LOPERAMIDE
     Indication: DIARRHOEA
     Dosage: 2 MILLIGRAM
     Route: 048
     Dates: start: 20200612
  13. MIDAZOLAM. [Concomitant]
     Active Substance: MIDAZOLAM
     Indication: PLATELET DISORDER
     Dosage: 2 MILLIGRAM
     Route: 042
     Dates: start: 20200613
  14. ZOPICLONE [Concomitant]
     Active Substance: ZOPICLONE
     Indication: SLEEP DISORDER
     Dosage: 2 MILLIGRAM
     Route: 048
     Dates: start: 20200602
  15. PARACETAMOL [Concomitant]
     Active Substance: ACETAMINOPHEN
     Indication: PREMEDICATION
     Dosage: 1 GRAM
     Route: 048
     Dates: start: 20200603
  16. SEVREDOL [Concomitant]
     Active Substance: MORPHINE
     Indication: ANALGESIC THERAPY
     Dosage: 10 MILLIGRAM, QID
     Route: 048
     Dates: start: 20200603
  17. DOMPERIDONE [Concomitant]
     Active Substance: DOMPERIDONE
     Indication: VOMITING
  18. FAMOTIDINE. [Concomitant]
     Active Substance: FAMOTIDINE
     Indication: PREMEDICATION
     Dosage: 40 MILLIGRAM
     Route: 048
     Dates: start: 20200617
  19. CYCLIZINE [Concomitant]
     Active Substance: CYCLIZINE
     Indication: VOMITING
  20. ONDANSETRON [Concomitant]
     Active Substance: ONDANSETRON
     Indication: VOMITING

REACTIONS (10)
  - Blood pressure decreased [Unknown]
  - Vomiting [Unknown]
  - Gastrointestinal haemorrhage [Fatal]
  - Tremor [Unknown]
  - Lower gastrointestinal haemorrhage [Unknown]
  - Haemorrhage intracranial [Fatal]
  - Product use in unapproved indication [Unknown]
  - Abdominal pain [Unknown]
  - Back pain [Unknown]
  - No adverse event [Unknown]

NARRATIVE: CASE EVENT DATE: 20200622
